FAERS Safety Report 8154392-0 (Version None)
Quarter: 2012Q1

REPORT INFORMATION
  Report Type: 
  Country: None (occurrence: None)
  Receive Date: 20120217
  Receipt Date: 20120217
  Transmission Date: 20120608
  Serious: No
  Sender: FDA-Public Use
  Company Number: None

PATIENT
  Age: 59 Year
  Sex: Male
  Weight: 83 kg

DRUGS (1)
  1. HEPARIN SODIUM 1,000 UNITS IN SODIUM CHLORIDE 0.9% [Suspect]
     Indication: THROMBOSIS PROPHYLAXIS
     Dosage: 5 ML PRN IV
     Route: 042
     Dates: start: 20111019, end: 20111023

REACTIONS (1)
  - THROMBOCYTOPENIA [None]
